FAERS Safety Report 21283268 (Version 2)
Quarter: 2022Q3

REPORT INFORMATION
  Report Type: Spontaneous
  Country: LT (occurrence: LT)
  Receive Date: 20220901
  Receipt Date: 20220914
  Transmission Date: 20221027
  Serious: Yes (Other)
  Sender: FDA-Public Use
  Company Number: LT-BAXTER-2022BAX018350

PATIENT
  Age: 50 Year

DRUGS (5)
  1. MIDAZOLAM [Suspect]
     Active Substance: MIDAZOLAM
     Route: 065
  2. PROPOFOL [Suspect]
     Active Substance: PROPOFOL
     Route: 065
  3. SEVOFLURANE [Suspect]
     Active Substance: SEVOFLURANE
     Route: 065
  4. ZOFRAN [Suspect]
     Active Substance: ONDANSETRON HYDROCHLORIDE
     Route: 065
  5. RINGERS SOLUTION [Suspect]
     Active Substance: CALCIUM CHLORIDE\POTASSIUM CHLORIDE\SODIUM CHLORIDE
     Route: 065

REACTIONS (4)
  - Airway peak pressure increased [Unknown]
  - Hypercapnia [Unknown]
  - Hypoxia [Unknown]
  - Hypertension [Unknown]
